FAERS Safety Report 11072163 (Version 3)
Quarter: 2015Q2

REPORT INFORMATION
  Report Type: Spontaneous
  Country: CH (occurrence: CH)
  Receive Date: 20150428
  Receipt Date: 20150624
  Transmission Date: 20150821
  Serious: Yes (Hospitalization, Other)
  Sender: FDA-Public Use
  Company Number: CH-PFIZER INC-2015000171

PATIENT
  Age: 67 Year
  Sex: Male

DRUGS (12)
  1. RAPAMUNE [Suspect]
     Active Substance: SIROLIMUS
     Indication: PROPHYLAXIS AGAINST TRANSPLANT REJECTION
     Dosage: 6 MG, SINGLE
     Dates: start: 20110901, end: 20110901
  2. NEPHROTRANS [Concomitant]
     Dosage: 1 DF, 2X/DAY (1-0-1-0)
  3. LESCOL [Concomitant]
     Active Substance: FLUVASTATIN SODIUM
     Dosage: 80 MG, 1X/DAY AT 80MG (0-0-1-0)
  4. MYFORTIC [Suspect]
     Active Substance: MYCOPHENOLATE SODIUM
     Dosage: 360 MG, (2-0-0-2)
     Dates: start: 201404
  5. VI-DE 3 [Concomitant]
     Dosage: 8 GTT, DAILY
  6. TOREM [Concomitant]
     Active Substance: TORSEMIDE
     Dosage: 10 MG, 2X/DAY AT 10MG (2-0-0-0),
  7. BELOC-ZOK COMP [Concomitant]
     Active Substance: HYDROCHLOROTHIAZIDE\METOPROLOL SUCCINATE
     Dosage: 100 MG, 1X/DAY 100MG (0-0-?-0)
  8. CALCIMAGON D3 [Concomitant]
     Active Substance: CALCIUM\CHOLECALCIFEROL
     Dosage: 1 DF  (1000MG CALCIUM AND 800MG CHOLECALCIFEROL) 1X/DAY (1-0 0-0)
  9. RAPAMUNE [Suspect]
     Active Substance: SIROLIMUS
     Dosage: 1 MG AND 2 MG ALTERNATING, 1X/DAY, WITH A TARGET LEVEL OF 4-8 UG/L
     Dates: start: 20110902, end: 201406
  10. FLAGYL [Concomitant]
     Active Substance: METRONIDAZOLE\METRONIDAZOLE HYDROCHLORIDE
     Dosage: 500 MG, 3X/DAY (1-1-1)
  11. ATACAND [Concomitant]
     Active Substance: CANDESARTAN CILEXETIL
     Dosage: 8 MG, (16 MG, ?-0-0-0)
  12. CIPROXIN [Concomitant]
     Active Substance: CIPROFLOXACIN
     Dosage: 250 MG, 2X/DAY (1-0-1-0)

REACTIONS (6)
  - Pleural effusion [Unknown]
  - Carbon monoxide diffusing capacity decreased [Unknown]
  - Ventilation/perfusion scan abnormal [Unknown]
  - Cough [Unknown]
  - Cytomegalovirus colitis [Unknown]
  - Interstitial lung disease [Not Recovered/Not Resolved]

NARRATIVE: CASE EVENT DATE: 20140626
